FAERS Safety Report 4483821-9 (Version None)
Quarter: 2004Q4

REPORT INFORMATION
  Report Type: 
  Country: None (occurrence: None)
  Receive Date: 20041025
  Receipt Date: 20041018
  Transmission Date: 20050328
  Serious: Yes (Other)
  Sender: FDA-Public Use
  Company Number: 200413966FR

PATIENT
  Sex: Female

DRUGS (2)
  1. LANTUS [Suspect]
     Indication: DIABETES MELLITUS
     Route: 058
  2. DRUG USED IN DIABETES [Concomitant]
     Indication: DIABETES MELLITUS
     Route: 058
     Dates: start: 20040101

REACTIONS (1)
  - MYALGIA [None]
